FAERS Safety Report 9704362 (Version 3)
Quarter: 2013Q4

REPORT INFORMATION
  Report Type: Report from Study
  Country: TW (occurrence: TW)
  Receive Date: 20131122
  Receipt Date: 20131230
  Transmission Date: 20140711
  Serious: Yes (Other)
  Sender: FDA-Public Use
  Company Number: TW-ROCHE-1307939

PATIENT
  Age: 72 Year
  Sex: Male

DRUGS (8)
  1. RANIBIZUMAB [Suspect]
     Indication: AGE-RELATED MACULAR DEGENERATION
     Route: 050
     Dates: start: 20130503
  2. RANIBIZUMAB [Suspect]
     Indication: DIABETIC RETINAL OEDEMA
     Route: 050
     Dates: start: 20130605
  3. RANIBIZUMAB [Suspect]
     Indication: RETINAL VEIN OCCLUSION
  4. CHLORAMPHENICOL [Concomitant]
     Route: 065
     Dates: start: 20130504, end: 20130511
  5. LEUPLIN [Concomitant]
     Indication: PROSTATE CANCER
     Route: 065
     Dates: start: 20130131
  6. TAMSULOSIN [Concomitant]
     Indication: PROSTATE CANCER
     Route: 065
     Dates: start: 20130131
  7. BICALUTAMIDE [Concomitant]
     Indication: PROSTATE CANCER
     Route: 065
     Dates: start: 20130131
  8. BICALUTAMIDE [Concomitant]
     Route: 050
     Dates: start: 20130605

REACTIONS (3)
  - Borderline glaucoma [Recovered/Resolved]
  - Ocular hypertension [Recovered/Resolved]
  - Intraocular pressure decreased [Unknown]
